FAERS Safety Report 8036820-4 (Version None)
Quarter: 2011Q4

REPORT INFORMATION
  Report Type: 
  Country: None (occurrence: None)
  Receive Date: 20111202
  Receipt Date: 20100409
  Transmission Date: 20120403
  Serious: Yes (Other)
  Sender: FDA-Public Use
  Company Number: 2010SP020840

PATIENT
  Age: 29 Year
  Sex: Female
  Weight: 99.7913 kg

DRUGS (4)
  1. ZOLOFT [Concomitant]
  2. RISPERIDONE [Concomitant]
  3. NUVARING [Suspect]
     Indication: CONTRACEPTION
     Dates: start: 20050222, end: 20071101
  4. NUVARING [Suspect]
     Indication: CONTRACEPTION
     Dates: start: 20071201, end: 20080805

REACTIONS (5)
  - DEEP VEIN THROMBOSIS [None]
  - VAGINAL DISCHARGE [None]
  - CHEST PAIN [None]
  - ABDOMINAL PAIN [None]
  - THROMBOPHLEBITIS [None]
